FAERS Safety Report 7880280 (Version 2)
Quarter: 2014Q2

REPORT INFORMATION
  Report Type: Spontaneous
  Country: US (occurrence: US)
  Receive Date: 20110331
  Receipt Date: 20140506
  Transmission Date: 20141212
  Serious: Yes (Other)
  Sender: FDA-Public Use
  Company Number: US-BAYER-2011-027285

PATIENT
  Age: 37 Year
  Sex: Female

DRUGS (4)
  1. YAZ [Suspect]
     Dosage: UNK
     Dates: start: 200101
  2. YASMIN [Suspect]
     Dosage: UNK
     Dates: start: 200101
  3. GLUCOPHAGE [Concomitant]
  4. XANAX [Concomitant]
     Dosage: UNK UNK, PRN
     Route: 048
     Dates: start: 20080718

REACTIONS (8)
  - Cholecystectomy [None]
  - Cholecystitis chronic [None]
  - Pain [None]
  - Emotional distress [None]
  - General physical health deterioration [None]
  - Anxiety [None]
  - Injury [None]
  - Anhedonia [None]
